FAERS Safety Report 19082516 (Version 1)
Quarter: 2021Q1

REPORT INFORMATION
  Report Type: Spontaneous
  Country: US (occurrence: US)
  Receive Date: 20210331
  Receipt Date: 20210331
  Transmission Date: 20210420
  Serious: Yes (Hospitalization)
  Sender: FDA-Public Use
  Company Number: None

PATIENT
  Age: 60 Year
  Sex: Female

DRUGS (12)
  1. AMLODIPINE [Concomitant]
     Active Substance: AMLODIPINE BESYLATE
  2. FUROSEMIDE. [Concomitant]
     Active Substance: FUROSEMIDE
  3. NORTRIPTYLIN [Concomitant]
     Active Substance: NORTRIPTYLINE
  4. ENBREL [Suspect]
     Active Substance: ETANERCEPT
     Indication: RHEUMATOID ARTHRITIS
     Route: 058
     Dates: start: 20190919
  5. ZOLPIDEM [Concomitant]
     Active Substance: ZOLPIDEM TARTRATE
  6. NORCO [Concomitant]
     Active Substance: ACETAMINOPHEN\HYDROCODONE BITARTRATE
  7. EANALAPRIL [Concomitant]
  8. LEVOTHYROXINE. [Concomitant]
     Active Substance: LEVOTHYROXINE
  9. PREGABLIN [Concomitant]
     Active Substance: PREGABALIN
  10. BREO ELLIPTA [Concomitant]
     Active Substance: FLUTICASONE FUROATE\VILANTEROL TRIFENATATE
  11. DULOXETINE. [Concomitant]
     Active Substance: DULOXETINE
  12. AIMOVIG [Concomitant]
     Active Substance: ERENUMAB-AOOE

REACTIONS (2)
  - Respiratory failure [None]
  - Urinary tract infection [None]

NARRATIVE: CASE EVENT DATE: 20210317
